FAERS Safety Report 6304925-1 (Version None)
Quarter: 2009Q3

REPORT INFORMATION
  Report Type: 
  Country: None (occurrence: None)
  Receive Date: 20090811
  Receipt Date: 20090803
  Transmission Date: 20100115
  Serious: Yes (Other)
  Sender: FDA-Public Use
  Company Number: US-AVENTIS-200916890US

PATIENT
  Sex: Female

DRUGS (1)
  1. LANTUS [Suspect]
     Dosage: DOSE: 30 IN AM AND 80 AT BEDTIME
     Route: 058

REACTIONS (5)
  - BLINDNESS [None]
  - CATARACT [None]
  - INJECTION SITE HAEMATOMA [None]
  - MACULAR DEGENERATION [None]
  - RETINAL DYSTROPHY [None]
